FAERS Safety Report 6111651-0 (Version None)
Quarter: 2009Q1

REPORT INFORMATION
  Report Type: 
  Country: None (occurrence: None)
  Receive Date: 20090311
  Receipt Date: 20090304
  Transmission Date: 20090719
  Serious: Yes (Death, Hospitalization, Other)
  Sender: FDA-Public Use
  Company Number: US-BRISTOL-MYERS SQUIBB COMPANY-14521595

PATIENT
  Age: 57 Year
  Sex: Female
  Weight: 49 kg

DRUGS (5)
  1. DASATINIB [Suspect]
     Indication: NON-SMALL CELL LUNG CANCER
     Dosage: 22-FEB-2009 INTERRUPTED
     Route: 048
     Dates: start: 20090211
  2. ERLOTINIB [Suspect]
     Indication: NON-SMALL CELL LUNG CANCER
     Dosage: INTERRUPTED 22-FEB-2009
     Route: 048
     Dates: start: 20090203
  3. ALBUTEROL [Concomitant]
     Dates: start: 20081231
  4. SPIRIVA [Concomitant]
  5. METOPROLOL TARTRATE [Concomitant]
     Dates: start: 20080325

REACTIONS (7)
  - DYSPNOEA [None]
  - MALIGNANT NEOPLASM PROGRESSION [None]
  - MYOCARDIAL INFARCTION [None]
  - PNEUMONIA [None]
  - REFUSAL OF TREATMENT BY RELATIVE [None]
  - RESPIRATORY FAILURE [None]
  - UPPER RESPIRATORY TRACT INFECTION [None]
